FAERS Safety Report 12733500 (Version 3)
Quarter: 2020Q1

REPORT INFORMATION
  Report Type: Spontaneous
  Country: FR (occurrence: FR)
  Receive Date: 20160912
  Receipt Date: 20200214
  Transmission Date: 20200409
  Serious: Yes (Congenital Anomaly, Other)
  Sender: FDA-Public Use
  Company Number: FR-ABBVIE-16P-056-1725279-00

PATIENT
  Age: 0 Day
  Sex: Male
  Weight: 3.15 kg

DRUGS (2)
  1. LEVOTHYROX [Suspect]
     Active Substance: LEVOTHYROXINE
     Indication: MATERNAL EXPOSURE TIMING UNSPECIFIED
     Route: 064
  2. DEPAKINE [Suspect]
     Active Substance: VALPROATE SODIUM
     Indication: EXPOSURE VIA BODY FLUID
     Route: 050

REACTIONS (5)
  - Heart disease congenital [Recovered/Resolved]
  - Paternal drugs affecting foetus [Unknown]
  - Paternal exposure during pregnancy [Unknown]
  - Cyanosis [Recovered/Resolved]
  - Foetal exposure during pregnancy [Unknown]

NARRATIVE: CASE EVENT DATE: 20160225
